FAERS Safety Report 8581379-6 (Version None)
Quarter: 2012Q3

REPORT INFORMATION
  Report Type: 
  Country: None (occurrence: None)
  Receive Date: 20120809
  Receipt Date: 20120801
  Transmission Date: 20120928
  Serious: Yes (Hospitalization)
  Sender: FDA-Public Use
  Company Number: US-BAYER-2012-079176

PATIENT
  Age: 20 Year
  Sex: Female

DRUGS (9)
  1. ACETAMINOPHEN W/ CODEINE [Concomitant]
     Dosage: UNK
     Dates: start: 20050516
  2. FLEXERIL [Concomitant]
     Dosage: 10 MG, HS
     Dates: start: 20050513
  3. MEDROL [Concomitant]
     Dosage: 4 MG, DOSE PACK.
     Dates: start: 20050516
  4. RELAFEN [Concomitant]
     Dosage: 500 MG, 2-3 TIMES/DAY WITH FOOD.
     Dates: start: 20050512
  5. TYLENOL W/ CODEINE NO. 3 [Concomitant]
     Indication: PAIN IN EXTREMITY
  6. CLINDAMYCIN [Concomitant]
     Dosage: 10 MG, UNK
     Dates: start: 20050415
  7. YASMIN [Suspect]
     Dosage: UNK
     Dates: start: 20040723, end: 20050517
  8. ERYTHROMYCIN [Concomitant]
     Dosage: 250 MG, UNK
     Dates: start: 20050414
  9. RELAFEN [Concomitant]
     Dosage: 500 MG,  2-3 TIMES/DAY WITH FOOD.
     Dates: start: 20050513

REACTIONS (1)
  - DEEP VEIN THROMBOSIS [None]
